FAERS Safety Report 8607990-1 (Version None)
Quarter: 2012Q3

REPORT INFORMATION
  Report Type: 
  Country: None (occurrence: None)
  Receive Date: 20120802
  Receipt Date: 20120723
  Transmission Date: 20120928
  Serious: Yes (Hospitalization)
  Sender: FDA-Public Use
  Company Number: DE-1193320

PATIENT
  Age: 55 Year
  Sex: Female

DRUGS (4)
  1. LATANOPROST [Concomitant]
  2. SEROQUEL [Concomitant]
  3. VENLAFAXINE [Concomitant]
  4. AZOPT [Suspect]
     Indication: GLAUCOMA
     Dosage: (1 GTT BID  OU OPHTHALMIC)
     Route: 047
     Dates: start: 20100501

REACTIONS (3)
  - DISEASE PROGRESSION [None]
  - GLAUCOMA [None]
  - BLOOD PRESSURE DECREASED [None]
